FAERS Safety Report 5217318-5 (Version None)
Quarter: 2007Q1

REPORT INFORMATION
  Report Type: 
  Country: None (occurrence: None)
  Receive Date: 20070124
  Receipt Date: 20060119
  Transmission Date: 20070707
  Serious: No
  Sender: FDA-Public Use
  Company Number: US-GLAXOSMITHKLINE-A0587537A

PATIENT
  Age: 68 Year
  Sex: Female

DRUGS (7)
  1. PAXIL CR [Suspect]
     Indication: MAJOR DEPRESSION
     Dosage: 25MG PER DAY
     Route: 048
     Dates: start: 20060103
  2. ATIVAN [Suspect]
     Dosage: .5MG SINGLE DOSE
  3. CELEXA [Concomitant]
  4. ATENOLOL [Concomitant]
  5. LEVOXYL [Concomitant]
  6. ELAVIL [Concomitant]
  7. ZYPREXA [Concomitant]

REACTIONS (8)
  - BURNING SENSATION [None]
  - DRY MOUTH [None]
  - DYSPEPSIA [None]
  - FATIGUE [None]
  - FEELING ABNORMAL [None]
  - HEADACHE [None]
  - MIGRAINE [None]
  - VOMITING [None]
